FAERS Safety Report 13581824 (Version 1)
Quarter: 2017Q2

REPORT INFORMATION
  Report Type: Report from Study
  Country: AT (occurrence: AT)
  Receive Date: 20170525
  Receipt Date: 20170525
  Transmission Date: 20170830
  Serious: Yes (Hospitalization)
  Sender: FDA-Public Use
  Company Number: AT-ROCHE-1935463

PATIENT
  Sex: Male
  Weight: 67.3 kg

DRUGS (4)
  1. ATEZOLIZUMAB [Suspect]
     Active Substance: ATEZOLIZUMAB
     Indication: LUNG ADENOCARCINOMA
     Route: 042
     Dates: start: 20170407, end: 20170428
  2. PRADAXA [Concomitant]
     Active Substance: DABIGATRAN ETEXILATE MESYLATE
     Dosage: 1-0-1 DAILY
     Route: 048
  3. HYDAL RETARD [Concomitant]
     Active Substance: HYDROMORPHONE HYDROCHLORIDE
     Dosage: 1-0-0-1 DAILY
     Route: 048
     Dates: start: 20170509
  4. BURONIL [Concomitant]
     Active Substance: MELPERONE HYDROCHLORIDE
     Dosage: 0-0-0-1 DAILY
     Route: 048

REACTIONS (6)
  - Chest pain [Unknown]
  - Insomnia [Unknown]
  - Nausea [Unknown]
  - Vitamin D deficiency [Unknown]
  - Neoplasm progression [Not Recovered/Not Resolved]
  - Decreased appetite [Unknown]
